FAERS Safety Report 10155842 (Version 1)
Quarter: 2014Q2

REPORT INFORMATION
  Report Type: Spontaneous
  Country: BR (occurrence: BR)
  Receive Date: 20140506
  Receipt Date: 20140506
  Transmission Date: 20141212
  Serious: Yes (Hospitalization, Other)
  Sender: FDA-Public Use
  Company Number: PHHY2014BR053620

PATIENT
  Age: 71 Year
  Sex: Male
  Weight: 70 kg

DRUGS (3)
  1. DIOVAN [Suspect]
     Indication: HYPERTENSION
     Dosage: 80 MG, DAILY
     Route: 048
  2. DIOVAN [Suspect]
     Dosage: 160 MG, DAILY
     Route: 048
  3. RIVOTRIL [Concomitant]
     Indication: SLEEP DISORDER
     Dosage: 0.5 DF, QD AT NIGHT

REACTIONS (16)
  - Cerebral thrombosis [Recovered/Resolved]
  - Prostate cancer [Recovered/Resolved]
  - Benign prostatic hyperplasia [Not Recovered/Not Resolved]
  - Pollakiuria [Not Recovered/Not Resolved]
  - Nephrolithiasis [Recovered/Resolved]
  - Bladder pain [Recovered/Resolved]
  - Urinary incontinence [Not Recovered/Not Resolved]
  - Dysuria [Recovered/Resolved]
  - Urethral stenosis [Not Recovered/Not Resolved]
  - Syncope [Recovered/Resolved]
  - Urinary tract infection [Not Recovered/Not Resolved]
  - Head injury [Recovered/Resolved]
  - Blood pressure decreased [Recovered/Resolved]
  - Dizziness [Recovered/Resolved]
  - Insomnia [Recovered/Resolved]
  - Wrong drug administered [Unknown]
